FAERS Safety Report 5869611-0 (Version None)
Quarter: 2008Q3

REPORT INFORMATION
  Report Type: 
  Country: None (occurrence: None)
  Receive Date: 20080904
  Receipt Date: 20080331
  Transmission Date: 20090109
  Serious: No
  Sender: FDA-Public Use
  Company Number: US-KINGPHARMUSA00001-K200800388

PATIENT

DRUGS (3)
  1. CYTOMEL [Suspect]
     Indication: HYPOTHYROIDISM
     Route: 048
     Dates: end: 20080201
  2. SYNTHROID [Suspect]
     Indication: HYPOTHYROIDISM
     Dosage: 88 MCG, QD
     Route: 048
     Dates: start: 20060401, end: 20070801
  3. SYNTHROID [Suspect]
     Dosage: 88 MCG, QD
     Route: 048
     Dates: start: 20080201

REACTIONS (4)
  - ANAEMIA [None]
  - OEDEMA [None]
  - PROTEIN TOTAL DECREASED [None]
  - THYROID FUNCTION TEST ABNORMAL [None]
